FAERS Safety Report 4721559-0 (Version None)
Quarter: 2005Q3

REPORT INFORMATION
  Report Type: 
  Country: None (occurrence: None)
  Receive Date: 20050721
  Receipt Date: 20041123
  Transmission Date: 20060218
  Serious: No
  Sender: FDA-Public Use
  Company Number: US-BRISTOL-MYERS SQUIBB COMPANY-12774352

PATIENT
  Age: 47 Year

DRUGS (7)
  1. COUMADIN [Suspect]
     Indication: VENOUS THROMBOSIS
     Route: 048
  2. RISPERDAL [Concomitant]
  3. LITHIUM [Concomitant]
  4. LEVAQUIN [Concomitant]
  5. KLONOPIN [Concomitant]
  6. DOCUSATE CALCIUM [Concomitant]
  7. NICOTINE [Concomitant]

REACTIONS (1)
  - DRUG INEFFECTIVE [None]
